FAERS Safety Report 7601940-2 (Version None)
Quarter: 2011Q3

REPORT INFORMATION
  Report Type: 
  Country: None (occurrence: None)
  Receive Date: 20110711
  Receipt Date: 20110103
  Transmission Date: 20111222
  Serious: Yes (Death, Other)
  Sender: FDA-Public Use
  Company Number: US-BAYER-2011-006651

PATIENT
  Age: 65 Year
  Sex: Female
  Weight: 58.957 kg

DRUGS (36)
  1. FENOFIBRATE [Concomitant]
     Dosage: 145 MG, QD
     Route: 048
  2. FENTANYL [Concomitant]
     Dosage: 25 ?G, UNK
     Route: 042
     Dates: start: 20071025, end: 20071025
  3. FENTANYL [Concomitant]
     Dosage: UNK
     Route: 042
     Dates: start: 20071026
  4. RED BLOOD CELLS [Concomitant]
     Dosage: 1 U, UNK
     Route: 042
     Dates: start: 20071026
  5. METOPROLOL TARTRATE [Concomitant]
     Dosage: 25 MG, BID
     Route: 048
  6. ROCURONIUM BROMIDE [Concomitant]
     Dosage: 100 MG, UNK
     Route: 042
     Dates: start: 20071025, end: 20071025
  7. AMIODARONE HCL [Concomitant]
     Dosage: 1 MG/KG/MIN
     Route: 042
     Dates: start: 20071025, end: 20071025
  8. DOBUTAMINE HCL [Concomitant]
     Dosage: 5 MCG/KG/MIN
     Route: 042
     Dates: start: 20071025, end: 20071025
  9. PROTAMINE SULFATE [Concomitant]
     Dosage: UNK
     Dates: start: 20071025, end: 20071025
  10. ANCEF [Concomitant]
     Dosage: 1 G, UNK
     Route: 042
     Dates: start: 20071026
  11. DEXAMETHASONE [Concomitant]
     Dosage: UNK
     Route: 042
     Dates: start: 20071026
  12. ALBUMIN (HUMAN) [Concomitant]
     Dosage: 200, PUMP PRIME
     Dates: start: 20071026
  13. ACETYLSALICYLIC ACID SRT [Concomitant]
     Dosage: 325 MG, UNK
     Route: 048
  14. NORVASC [Concomitant]
     Dosage: 10 MG, UNK
     Route: 048
  15. TRICOR [Concomitant]
     Dosage: 145 MG, QD
     Route: 048
  16. TRASYLOL [Suspect]
     Indication: AORTIC VALVE REPLACEMENT
     Dosage: 100 ML, PUMP PRIME
     Route: 042
     Dates: start: 20071026, end: 20071026
  17. INSULIN [Concomitant]
     Dosage: 40 U, UNK
     Route: 042
     Dates: start: 20071025, end: 20071025
  18. PROTAMINE SULFATE [Concomitant]
     Dosage: 100 MG, UNK
     Route: 042
     Dates: start: 20071026
  19. VANCOMYCIN [Concomitant]
     Dosage: 500 MG, UNK
     Route: 061
     Dates: start: 20071026
  20. MIDAZOLAM HCL [Concomitant]
     Dosage: 5 MG, UNK
     Route: 042
     Dates: start: 20071025, end: 20071025
  21. DOBUTAMINE HCL [Concomitant]
     Dosage: 7 ?G, UNK
     Route: 042
     Dates: start: 20071026
  22. PROTAMINE SULFATE [Concomitant]
     Dosage: 10 ML, UNK
     Dates: start: 20071026
  23. HEPARIN [Concomitant]
     Dosage: 1500 U, UNK
     Route: 042
     Dates: start: 20071026
  24. VALIUM [Concomitant]
     Dosage: 5 MG, UNK
     Route: 048
     Dates: start: 20071025, end: 20071025
  25. MANNITOL [Concomitant]
     Dosage: 100, PUMP PRIME
     Route: 042
     Dates: start: 20071026
  26. MIDAZOLAM HCL [Concomitant]
     Dosage: 1 MG, UNK
     Route: 042
     Dates: start: 20071025, end: 20071025
  27. AMIODARONE HCL [Concomitant]
     Dosage: 150 MG, UNK
     Route: 042
     Dates: start: 20071026
  28. INSULIN [Concomitant]
     Dosage: 37 U, UNK
     Route: 042
     Dates: start: 20071026
  29. ANCEF [Concomitant]
     Dosage: 1 G, UNK
     Route: 042
     Dates: start: 20071025, end: 20071025
  30. ZOLOFT [Concomitant]
     Dosage: 50 MG, QD
     Route: 048
  31. AMIODARONE HCL [Concomitant]
     Dosage: UNK
     Route: 042
     Dates: start: 20071026
  32. AMLODIPINE [Concomitant]
     Dosage: 5 MG, QD
     Route: 048
  33. SIMVASTATIN [Concomitant]
     Dosage: 50 MG, QD
     Route: 048
  34. BENADRYL [Concomitant]
     Dosage: 25 MG, UNK
     Route: 048
     Dates: start: 20071025, end: 20071025
  35. HEPARIN [Concomitant]
     Dosage: 180 MG, PUMP PRIME
     Route: 042
     Dates: start: 20071026
  36. PLASMALYTE [GLUCOSE,POTASSIUM CHLORIDE] [Concomitant]
     Dosage: 1000 ML, UNK
     Route: 042
     Dates: start: 20071026

REACTIONS (12)
  - RENAL IMPAIRMENT [None]
  - UNEVALUABLE EVENT [None]
  - STRESS [None]
  - MYOCARDIAL INFARCTION [None]
  - RENAL FAILURE [None]
  - EMOTIONAL DISTRESS [None]
  - PAIN [None]
  - DEATH [None]
  - MULTI-ORGAN FAILURE [None]
  - RENAL INJURY [None]
  - ANXIETY [None]
  - FEAR [None]
